FAERS Safety Report 9533601 (Version 1)
Quarter: 2013Q2

REPORT INFORMATION
  Report Type: Spontaneous
  Country: US (occurrence: None)
  Receive Date: 20130403
  Receipt Date: 20130403
  Transmission Date: 20140414
  Serious: Yes (Other)
  Sender: FDA-Public Use
  Company Number: US-2012-11380

PATIENT
  Age: 25 Month
  Sex: Male

DRUGS (3)
  1. BUSULFEX [Suspect]
     Indication: GRAFT VERSUS HOST DISEASE
     Dosage: (EVERY 6 HOURS X 16 DOSES OVER 4 DAYS)
     Route: 042
  2. BUSULFEX [Suspect]
     Indication: PROPHYLAXIS
     Dosage: (EVERY 6 HOURS X 16 DOSES OVER 4 DAYS)
     Route: 042
  3. CYTOXAN (CYCLOPHOSPHAMIDE) [Concomitant]

REACTIONS (1)
  - Bacteraemia [None]
